FAERS Safety Report 9110445 (Version 1)
Quarter: 2013Q1

REPORT INFORMATION
  Report Type: Spontaneous
  Country: US (occurrence: US)
  Receive Date: 20130219
  Receipt Date: 20130219
  Transmission Date: 20140127
  Serious: Yes (Other)
  Sender: FDA-Public Use
  Company Number: US-BRACCO-007779

PATIENT
  Sex: Female

DRUGS (2)
  1. ISOVUE 300 [Suspect]
     Indication: SPINAL MYELOGRAM
     Route: 037
     Dates: start: 2011, end: 2011
  2. ISOVUE 300 [Suspect]
     Indication: PRODUCT USED FOR UNKNOWN INDICATION
     Route: 037
     Dates: start: 2011, end: 2011

REACTIONS (1)
  - Convulsion [Recovered/Resolved]
